FAERS Safety Report 11824321 (Version 1)
Quarter: 2015Q4

REPORT INFORMATION
  Report Type: Other
  Country: NL (occurrence: NL)
  Receive Date: 20151210
  Receipt Date: 20151210
  Transmission Date: 20160305
  Serious: Yes (Other)
  Sender: FDA-Public Use
  Company Number: NL-APOTEX-2015AP015017

PATIENT
  Age: 64 Year
  Sex: Male

DRUGS (1)
  1. PAROXETINE [Suspect]
     Active Substance: PAROXETINE\PAROXETINE HYDROCHLORIDE
     Indication: DEPRESSED MOOD
     Dosage: 20 MG, QD
     Route: 065
     Dates: start: 201511

REACTIONS (1)
  - Suicide attempt [Recovering/Resolving]

NARRATIVE: CASE EVENT DATE: 20151115
